FAERS Safety Report 12358815 (Version 3)
Quarter: 2018Q1

REPORT INFORMATION
  Report Type: Spontaneous
  Country: GB (occurrence: GB)
  Receive Date: 20160512
  Receipt Date: 20180123
  Transmission Date: 20180508
  Serious: Yes (Other)
  Sender: FDA-Public Use
  Company Number: GB-TEVA-658088ACC

PATIENT
  Age: 46 Year
  Sex: Female
  Weight: 69 kg

DRUGS (7)
  1. EVEROLIMUS. [Suspect]
     Active Substance: EVEROLIMUS
     Indication: BREAST CANCER
     Route: 065
  2. EXEMESTANE. [Suspect]
     Active Substance: EXEMESTANE
     Indication: PRODUCT USED FOR UNKNOWN INDICATION
     Route: 065
  3. CAPECITABINE. [Concomitant]
     Active Substance: CAPECITABINE
  4. ZOLEDRONIC ACID [Suspect]
     Active Substance: ZOLEDRONIC ACID
     Indication: BREAST CANCER
     Route: 042
  5. LETROZOLE. [Suspect]
     Active Substance: LETROZOLE
     Indication: BREAST CANCER
     Route: 065
  6. ZOLADEX [Suspect]
     Active Substance: GOSERELIN ACETATE
     Indication: BREAST CANCER
     Route: 058
  7. TAMOXIFEN [Concomitant]
     Active Substance: TAMOXIFEN

REACTIONS (7)
  - Lymphadenopathy mediastinal [Unknown]
  - Pneumonitis [Unknown]
  - Pleural effusion [Unknown]
  - Disease progression [Unknown]
  - Cough [Unknown]
  - Bone disorder [Unknown]
  - Pericardial effusion [Unknown]

NARRATIVE: CASE EVENT DATE: 201406
